FAERS Safety Report 5735829-0 (Version None)
Quarter: 2008Q2

REPORT INFORMATION
  Report Type: 
  Country: None (occurrence: None)
  Receive Date: 20080508
  Receipt Date: 20080508
  Transmission Date: 20081010
  Serious: No
  Sender: FDA-Public Use
  Company Number: None

PATIENT
  Sex: Male
  Weight: 65.2273 kg

DRUGS (1)
  1. ERLOTINIB 150 MG GENENTECH [Suspect]
     Indication: MYELODYSPLASTIC SYNDROME
     Dosage: 150MG DAILY PO
     Route: 048
     Dates: start: 20080407

REACTIONS (1)
  - FEBRILE NEUTROPENIA [None]
